FAERS Safety Report 9684530 (Version 1)
Quarter: 2013Q4

REPORT INFORMATION
  Report Type: Spontaneous
  Country: FR (occurrence: FR)
  Receive Date: 20131112
  Receipt Date: 20131112
  Transmission Date: 20140711
  Serious: Yes (Hospitalization)
  Sender: FDA-Public Use
  Company Number: PHHY2013FR126406

PATIENT
  Age: 58 Year
  Sex: Female

DRUGS (4)
  1. CLONAZEPAM [Suspect]
     Route: 048
  2. LEVOMEPROMAZINE [Interacting]
     Dosage: 1.2 G, UNK
     Route: 048
  3. ZOPICLONE [Interacting]
     Route: 048
  4. BYETTA [Interacting]
     Dosage: 600 UG, PEN
     Route: 058

REACTIONS (3)
  - Hypoglycaemia [Recovering/Resolving]
  - Coma [Recovering/Resolving]
  - Nausea [Unknown]
